FAERS Safety Report 7958940-2 (Version None)
Quarter: 2011Q4

REPORT INFORMATION
  Report Type: 
  Country: None (occurrence: None)
  Receive Date: 20111206
  Receipt Date: 20111123
  Transmission Date: 20120403
  Serious: Yes (Hospitalization, Other)
  Sender: FDA-Public Use
  Company Number: US-ELI_LILLY_AND_COMPANY-US201108000323

PATIENT
  Sex: Female

DRUGS (16)
  1. FORTEO [Suspect]
     Indication: OSTEOPOROSIS
     Dosage: 20 UG, QD
     Route: 065
     Dates: start: 20110501
  2. PLAVIX [Concomitant]
  3. VITAMIN TAB [Concomitant]
  4. FORTEO [Suspect]
     Dosage: 20 UG, QD
     Route: 065
  5. DIGOXIN [Concomitant]
  6. FORTEO [Suspect]
     Dosage: 20 UG, QD
     Route: 065
     Dates: end: 20110801
  7. FORTEO [Suspect]
     Dosage: 20 UG, QD
     Route: 065
     Dates: start: 20111109
  8. PREDNISONE TAB [Concomitant]
  9. HYDROCODONE [Concomitant]
  10. PANTOPRAZOLE [Concomitant]
  11. CARISOPRODOL [Concomitant]
  12. ALLOPURINOL [Concomitant]
  13. ISOSORBIDE MONONITRATE [Concomitant]
  14. POTASSIUM ACETATE [Concomitant]
  15. LEVOTHYROXINE SODIUM [Concomitant]
  16. ROFLUMILAST [Concomitant]

REACTIONS (12)
  - BLOOD TEST ABNORMAL [None]
  - PNEUMONIA [None]
  - FALL [None]
  - CLAVICLE FRACTURE [None]
  - INTENTIONAL DRUG MISUSE [None]
  - HEAD INJURY [None]
  - PHARYNGEAL OEDEMA [None]
  - HOSPITALISATION [None]
  - DRUG DOSE OMISSION [None]
  - BLOOD PRESSURE DECREASED [None]
  - CARDIAC FAILURE CONGESTIVE [None]
  - MALAISE [None]
